FAERS Safety Report 9491992 (Version 1)
Quarter: 2013Q3

REPORT INFORMATION
  Report Type: Spontaneous
  Country: CA (occurrence: CA)
  Receive Date: 20130830
  Receipt Date: 20130830
  Transmission Date: 20140515
  Serious: Yes (Hospitalization)
  Sender: FDA-Public Use
  Company Number: CA-SANOFI-AVENTIS-2013SA085535

PATIENT
  Age: 40 Year
  Sex: Female

DRUGS (14)
  1. INSULIN GLARGINE [Suspect]
     Indication: TYPE 1 DIABETES MELLITUS
     Route: 058
  2. INSULIN HUMAN REGULAR [Suspect]
     Indication: TYPE 1 DIABETES MELLITUS
     Dosage: DILUTED IN NORMAL SALINE AND STARTED AT 0.01 UNITS/H
     Route: 042
  3. INSULIN LISPRO [Suspect]
     Indication: TYPE 1 DIABETES MELLITUS
     Route: 058
  4. I.V. SOLUTIONS [Concomitant]
     Indication: DIABETIC KETOACIDOSIS
  5. INSULIN [Concomitant]
     Indication: DIABETIC KETOACIDOSIS
     Route: 042
  6. EPINEPHRINE [Concomitant]
  7. METHYLPREDNISOLONE [Concomitant]
  8. DIPHENHYDRAMINE [Concomitant]
  9. SALBUTAMOL [Concomitant]
  10. HYDROCORTISONE [Concomitant]
     Route: 042
  11. DIPHENHYDRAMINE [Concomitant]
     Route: 042
  12. SALINE [Concomitant]
  13. INSULIN DETEMIR [Concomitant]
  14. INSULIN ASPART [Concomitant]

REACTIONS (3)
  - Wheezing [Recovered/Resolved]
  - Paraesthesia oral [Unknown]
  - Urticaria [Recovered/Resolved]
